FAERS Safety Report 5625438-6 (Version None)
Quarter: 2008Q1

REPORT INFORMATION
  Report Type: 
  Country: None (occurrence: None)
  Receive Date: 20080211
  Receipt Date: 20080131
  Transmission Date: 20080703
  Serious: Yes (Hospitalization)
  Sender: FDA-Public Use
  Company Number: CLOF-10637

PATIENT
  Age: 10 Year
  Sex: Male
  Weight: 50 kg

DRUGS (36)
  1. CLOFARABINE (CLOFARABINE) [Suspect]
     Dosage: SEE IMAGE
     Route: 042
     Dates: start: 20060908, end: 20060912
  2. CLOFARABINE (CLOFARABINE) [Suspect]
     Dosage: SEE IMAGE
     Route: 042
     Dates: start: 20061013, end: 20061016
  3. CLOFARABINE (CLOFARABINE) [Suspect]
     Dosage: SEE IMAGE
     Route: 042
     Dates: start: 20061124, end: 20061127
  4. CLOFARABINE (CLOFARABINE) [Suspect]
     Dosage: SEE IMAGE
     Route: 042
     Dates: start: 20061226, end: 20061229
  5. CLOFARABINE (CLOFARABINE) [Suspect]
     Dosage: SEE IMAGE
     Route: 042
     Dates: start: 20070131, end: 20070203
  6. CLOFARABINE (CLOFARABINE) [Suspect]
     Dosage: SEE IMAGE
     Route: 042
     Dates: start: 20070320, end: 20070323
  7. CLOFARABINE (CLOFARABINE) [Suspect]
     Dosage: SEE IMAGE
     Route: 042
     Dates: start: 20070508, end: 20070511
  8. CLOFARABINE (CLOFARABINE) [Suspect]
     Dosage: SEE IMAGE
     Route: 042
     Dates: start: 20070626, end: 20070629
  9. ETOPOSIDE [Suspect]
     Dosage: SEE IMAGE
     Route: 042
     Dates: start: 20060908, end: 20060912
  10. ETOPOSIDE [Suspect]
     Dosage: SEE IMAGE
     Route: 042
     Dates: start: 20061013, end: 20061016
  11. ETOPOSIDE [Suspect]
     Dosage: SEE IMAGE
     Route: 042
     Dates: start: 20061124, end: 20061127
  12. ETOPOSIDE [Suspect]
     Dosage: SEE IMAGE
     Route: 042
     Dates: start: 20061226, end: 20061229
  13. ETOPOSIDE [Suspect]
     Dosage: SEE IMAGE
     Route: 042
     Dates: start: 20070131, end: 20070203
  14. ETOPOSIDE [Suspect]
     Dosage: SEE IMAGE
     Route: 042
     Dates: start: 20070320, end: 20070323
  15. ETOPOSIDE [Suspect]
     Dosage: SEE IMAGE
     Route: 042
     Dates: start: 20070508, end: 20070511
  16. ETOPOSIDE [Suspect]
     Dosage: SEE IMAGE
     Route: 042
     Dates: start: 20070626
  17. CYCLOPHOSPHAMIDE [Suspect]
     Dosage: SEE IMAGE
     Route: 042
     Dates: start: 20060908, end: 20060912
  18. CYCLOPHOSPHAMIDE [Suspect]
     Dosage: SEE IMAGE
     Route: 042
     Dates: start: 20061013, end: 20061016
  19. CYCLOPHOSPHAMIDE [Suspect]
     Dosage: SEE IMAGE
     Route: 042
     Dates: start: 20061124, end: 20061127
  20. CYCLOPHOSPHAMIDE [Suspect]
     Dosage: SEE IMAGE
     Route: 042
     Dates: start: 20061226, end: 20061229
  21. CYCLOPHOSPHAMIDE [Suspect]
     Dosage: SEE IMAGE
     Route: 042
     Dates: start: 20070131, end: 20070203
  22. CYCLOPHOSPHAMIDE [Suspect]
     Dosage: SEE IMAGE
     Route: 042
     Dates: start: 20070320, end: 20070323
  23. CYCLOPHOSPHAMIDE [Suspect]
     Dosage: SEE IMAGE
     Route: 042
     Dates: start: 20070508, end: 20070511
  24. CYCLOPHOSPHAMIDE [Suspect]
     Dosage: SEE IMAGE
     Route: 042
     Dates: start: 20070626, end: 20070629
  25. ACETAMINOPHEN [Concomitant]
  26. GABAPENTIN [Concomitant]
  27. SENNA-S (DOCUSATE SODIUM, SENNA ALEXANDRINA) [Concomitant]
  28. MIRALAX [Concomitant]
  29. METHADONE HCL [Concomitant]
  30. BACTRIM [Concomitant]
  31. VORICONAZOLE (VORICONAZOLE) [Concomitant]
  32. VALACYCLOVIR [Concomitant]
  33. ACTIVASE [Concomitant]
  34. METHOTHEXATE [Concomitant]
  35. CLOTRIMAZOLE [Concomitant]
  36. HYDROCORTISONE TOPICAL [Concomitant]

REACTIONS (21)
  - CAECITIS [None]
  - CHEMICAL EYE INJURY [None]
  - COLLAPSE OF LUNG [None]
  - COMPUTERISED TOMOGRAM ABNORMAL [None]
  - CORNEAL ABRASION [None]
  - EPISTAXIS [None]
  - FATIGUE [None]
  - FEBRILE NEUTROPENIA [None]
  - FUNGAL INFECTION [None]
  - HAEMATOCRIT DECREASED [None]
  - HAEMOGLOBIN DECREASED [None]
  - HERPES ZOSTER [None]
  - HYPOKALAEMIA [None]
  - LUNG INFECTION [None]
  - LYMPHADENOPATHY [None]
  - MUSCLE SPASMS [None]
  - ORAL INTAKE REDUCED [None]
  - PHOTOPHOBIA [None]
  - RENAL DISORDER [None]
  - THROMBOCYTOPENIA [None]
  - TRICHIASIS [None]
